FAERS Safety Report 7701795-1 (Version None)
Quarter: 2011Q3

REPORT INFORMATION
  Report Type: 
  Country: None (occurrence: None)
  Receive Date: 20110822
  Receipt Date: 20110808
  Transmission Date: 20111222
  Serious: No
  Sender: FDA-Public Use
  Company Number: US-B.I. PHARMACEUTICALS,INC./RIDGEFIELD-2011-BP-19448BP

PATIENT
  Sex: Female

DRUGS (3)
  1. MIRAPEX [Suspect]
     Indication: PARKINSON'S DISEASE
     Dosage: 1.5 MG
     Route: 048
     Dates: start: 19970101
  2. ARTANE [Concomitant]
     Indication: PARKINSON'S DISEASE
  3. ELDEPRYL [Concomitant]
     Indication: PARKINSON'S DISEASE

REACTIONS (1)
  - DISTURBANCE IN ATTENTION [None]
